FAERS Safety Report 10452494 (Version 1)
Quarter: 2014Q3

REPORT INFORMATION
  Report Type: Spontaneous
  Country: US (occurrence: US)
  Receive Date: 20140915
  Receipt Date: 20140915
  Transmission Date: 20150326
  Serious: No
  Sender: FDA-Public Use
  Company Number: US-TEVA-505435USA

PATIENT
  Age: 4 Year
  Sex: Male
  Weight: 19.07 kg

DRUGS (2)
  1. QVAR [Suspect]
     Active Substance: BECLOMETHASONE DIPROPIONATE
     Indication: BRONCHIAL HYPERREACTIVITY
     Dates: start: 20140730
  2. XOPENEX [Concomitant]
     Active Substance: LEVALBUTEROL HYDROCHLORIDE
     Indication: BRONCHIAL HYPERREACTIVITY
     Route: 055

REACTIONS (9)
  - Pollakiuria [Not Recovered/Not Resolved]
  - Dysuria [Recovered/Resolved]
  - Enuresis [Not Recovered/Not Resolved]
  - Agitation [Not Recovered/Not Resolved]
  - Mental disorder [Not Recovered/Not Resolved]
  - Thirst [Not Recovered/Not Resolved]
  - Irritability [Not Recovered/Not Resolved]
  - Psychomotor hyperactivity [Not Recovered/Not Resolved]
  - Mood swings [Not Recovered/Not Resolved]

NARRATIVE: CASE EVENT DATE: 20140810
